FAERS Safety Report 9283862 (Version 1)
Quarter: 2013Q2

REPORT INFORMATION
  Report Type: Spontaneous
  Country: MY (occurrence: MY)
  Receive Date: 20130510
  Receipt Date: 20130510
  Transmission Date: 20140414
  Serious: Yes (Other)
  Sender: FDA-Public Use
  Company Number: MY-BAYER-2013-054020

PATIENT
  Age: 48 Year
  Sex: Female

DRUGS (1)
  1. AS 300 [Suspect]
     Indication: ACUTE CORONARY SYNDROME
     Dosage: 300 MG, ONCE
     Route: 048

REACTIONS (3)
  - Angioedema [Recovered/Resolved]
  - Urticaria [Recovered/Resolved]
  - Conjunctivitis [Recovered/Resolved]
